FAERS Safety Report 8668360 (Version 2)
Quarter: 2013Q1

REPORT INFORMATION
  Report Type: Report from Study
  Country: JP (occurrence: JP)
  Receive Date: 20120717
  Receipt Date: 20130207
  Transmission Date: 20140127
  Serious: Yes (Other)
  Sender: FDA-Public Use
  Company Number: JP-VERTEX PHARMACEUTICALS INC.-AE-2012-010093

PATIENT
  Age: 30 Year
  Sex: Male

DRUGS (7)
  1. VX-950 (TELAPREVIR) [Suspect]
     Indication: CHRONIC HEPATITIS C
     Dosage: 2250 MG, QD
     Route: 048
     Dates: start: 20120404, end: 20120502
  2. RIBAVIRIN [Suspect]
     Indication: CHRONIC HEPATITIS C
     Dosage: 800 MG, QD
     Route: 048
     Dates: start: 20120404, end: 20120502
  3. PEGINTERFERON ALFA-2B [Suspect]
     Indication: CHRONIC HEPATITIS C
     Dosage: 1.5 ?G/KG, QW
     Route: 058
     Dates: start: 20120404, end: 20120502
  4. VOLTAREN [Concomitant]
     Dosage: 37.5 MG, PRN
     Route: 048
     Dates: start: 20120404, end: 20120502
  5. ALLEGRA [Concomitant]
     Dosage: 60 MG, QD
     Route: 048
     Dates: start: 20120404, end: 20120502
  6. HIRUDOID SOFT OINTMENT [Concomitant]
     Dosage: UNK, PRN
     Route: 061
     Dates: start: 20120406, end: 20120409
  7. ANTEBATE [Concomitant]
     Dosage: UNK, PRN
     Route: 061
     Dates: start: 20120406, end: 20120409

REACTIONS (2)
  - Malaise [Recovered/Resolved]
  - Nausea [Recovered/Resolved]
